FAERS Safety Report 7608062-5 (Version None)
Quarter: 2011Q3

REPORT INFORMATION
  Report Type: 
  Country: None (occurrence: None)
  Receive Date: 20110714
  Receipt Date: 20110707
  Transmission Date: 20111222
  Serious: Yes (Hospitalization, Other)
  Sender: FDA-Public Use
  Company Number: DE-JNJFOC-20110702975

PATIENT
  Sex: Male

DRUGS (1)
  1. IMODIUM AD [Suspect]
     Indication: DIARRHOEA
     Route: 048

REACTIONS (4)
  - POISONING [None]
  - ABDOMINAL PAIN [None]
  - MUSCLE SPASMS [None]
  - CONSTIPATION [None]
